FAERS Safety Report 8955077 (Version 1)
Quarter: 2012Q4

REPORT INFORMATION
  Report Type: 
  Country: CA (occurrence: CA)
  Receive Date: 20121207
  Receipt Date: 20121207
  Transmission Date: 20130627
  Serious: Yes (Disabling)
  Sender: FDA-Public Use
  Company Number: CA-ASTRAZENECA-2012SE89945

PATIENT
  Age: 68 Year
  Sex: Male

DRUGS (6)
  1. CRESTOR [Suspect]
     Route: 048
  2. ACETYLSALICYLIC ACID [Concomitant]
  3. CELEBREX [Concomitant]
  4. COVERSYL [Concomitant]
  5. METOPROLOL [Concomitant]
  6. PLAVIX [Concomitant]

REACTIONS (3)
  - Diarrhoea [Recovered/Resolved]
  - Migraine [Recovered/Resolved]
  - Headache [Recovered/Resolved]
